FAERS Safety Report 6393598-8 (Version None)
Quarter: 2009Q4

REPORT INFORMATION
  Report Type: 
  Country: None (occurrence: None)
  Receive Date: 20091008
  Receipt Date: 20090925
  Transmission Date: 20100525
  Serious: Yes (Other)
  Sender: FDA-Public Use
  Company Number: US-JNJFOC-20091000371

PATIENT
  Age: 5 Year
  Sex: Male
  Weight: 12.7 kg

DRUGS (2)
  1. CHILDREN'S TYLENOL PLUS FLU BUBBLEGUM [Suspect]
     Indication: PYREXIA
     Route: 048
  2. AMOXICILLIN [Concomitant]
     Indication: PHARYNGITIS

REACTIONS (3)
  - DRUG INEFFECTIVE [None]
  - EXPIRED DRUG ADMINISTERED [None]
  - TRANSMISSION OF AN INFECTIOUS AGENT VIA A MEDICINAL PRODUCT [None]
